FAERS Safety Report 9735178 (Version 2)
Quarter: 2013Q4

REPORT INFORMATION
  Report Type: Spontaneous
  Country: US (occurrence: US)
  Receive Date: 20131206
  Receipt Date: 20131230
  Transmission Date: 20140711
  Serious: Yes (Other)
  Sender: FDA-Public Use
  Company Number: US-ASTELLAS-2013US012611

PATIENT
  Age: 53 Year
  Sex: Female
  Weight: 115 kg

DRUGS (9)
  1. VESICARE [Suspect]
     Indication: PRODUCT USED FOR UNKNOWN INDICATION
     Dosage: 5 MG, UID/QD
     Route: 048
     Dates: start: 201310, end: 201311
  2. VESICARE [Suspect]
     Dosage: 10 MG, UID/QD
     Route: 048
     Dates: start: 201311
  3. OMEPRAZOLE [Concomitant]
     Indication: COLITIS
     Dosage: 20 MG, BID
     Route: 048
  4. METFORMIN [Concomitant]
     Indication: TYPE 2 DIABETES MELLITUS
     Dosage: 500 MG, BID
     Route: 048
  5. HYDROCHLOROTHIAZIDE [Concomitant]
     Indication: FLUID RETENTION
     Dosage: 25 MG, UID/QD
     Route: 048
  6. LEVOTHYROXINE [Concomitant]
     Indication: HYPOTHYROIDISM
     Dosage: .88 UG, UID/QD
     Route: 048
  7. LEXAPRO [Concomitant]
     Indication: ANXIETY
     Dosage: 20 MG, UID/QD
     Route: 048
  8. LISINOPRIL [Concomitant]
     Indication: HYPERTENSION
     Dosage: 20 MG, UID/QD
     Route: 048
  9. RESTASIS [Concomitant]
     Indication: DRY EYE
     Dosage: 1 DROP EVERY 12 HOURS

REACTIONS (3)
  - Drug ineffective [Unknown]
  - Cystitis interstitial [Unknown]
  - Dry mouth [Unknown]
